FAERS Safety Report 5301545-2 (Version None)
Quarter: 2007Q2

REPORT INFORMATION
  Report Type: 
  Country: None (occurrence: None)
  Receive Date: 20070412
  Receipt Date: 20070321
  Transmission Date: 20071010
  Serious: Yes (Hospitalization)
  Sender: FDA-Public Use
  Company Number: 6031283

PATIENT
  Age: 81 Year
  Sex: Male

DRUGS (17)
  1. FOSINOPRIL SODIUM AND HYDROCHLOROTHIAZIDE [Suspect]
     Indication: ESSENTIAL HYPERTENSION
     Dosage: 1,00 DOSAGE FORMS (1 DOSAGE FORMS, 1 IN 1 D)  ORAL
     Route: 048
     Dates: end: 20070117
  2. ALDACTONE [Suspect]
     Indication: ESSENTIAL HYPERTENSION
     Dosage: 75 MG (75 MG, 1D)
     Dates: end: 20070117
  3. TRAMADOL HCL [Concomitant]
  4. ACETAMINOPHEN [Concomitant]
  5. LEVOTHYROXINE SODIUM [Concomitant]
  6. COMBIVENT [Concomitant]
  7. AERIUS (5 MG) (DESLORATADINE) [Concomitant]
  8. NEBILOX (5 MG) (NEBIVOLOL  HYDROCHLORIDE) [Concomitant]
  9. COUMADIN [Concomitant]
  10. NATISPRAY (GLYCERYL TRINITRATE) [Concomitant]
  11. ZYLORIC (300 MG) (ALLOPURIMOL) [Concomitant]
  12. EXELON (3 MG) (RIVASTIGMINE) [Concomitant]
  13. EQUANIL (400 MG) (MEPROBAMATE) [Concomitant]
  14. MOPRAL (20 MG) (OMEPRAZOLE) [Concomitant]
  15. LORAZEPAM [Concomitant]
  16. DAFLON (DIOSMIN) [Concomitant]
  17. TRANSIPEG (MACROGOL) [Concomitant]

REACTIONS (15)
  - BLOOD POTASSIUM INCREASED [None]
  - BLOOD SODIUM DECREASED [None]
  - BLOOD UREA INCREASED [None]
  - DISORIENTATION [None]
  - DRUG INEFFECTIVE [None]
  - ELECTROLYTE IMBALANCE [None]
  - FALL [None]
  - FRACTURED ISCHIUM [None]
  - HALLUCINATION [None]
  - HUMERUS FRACTURE [None]
  - LOGORRHOEA [None]
  - MIOSIS [None]
  - OVERDOSE [None]
  - PSYCHOMOTOR HYPERACTIVITY [None]
  - PUBIC RAMI FRACTURE [None]
